FAERS Safety Report 10175521 (Version 1)
Quarter: 2014Q2

REPORT INFORMATION
  Report Type: Spontaneous
  Country: US (occurrence: US)
  Receive Date: 20140516
  Receipt Date: 20140516
  Transmission Date: 20141212
  Serious: Yes (Hospitalization)
  Sender: FDA-Public Use
  Company Number: PHHY2014US055962

PATIENT
  Age: 71 Year
  Sex: Female

DRUGS (2)
  1. BUPROPION [Suspect]
  2. LAMOTRIGINE [Suspect]

REACTIONS (13)
  - Status epilepticus [Recovered/Resolved]
  - Mental status changes [Recovered/Resolved]
  - Convulsion [Recovered/Resolved]
  - Generalised tonic-clonic seizure [Recovered/Resolved]
  - Excessive eye blinking [Recovered/Resolved]
  - Muscle twitching [Recovered/Resolved]
  - Posturing [Recovered/Resolved]
  - Tonic clonic movements [Recovered/Resolved]
  - Disorientation [Recovered/Resolved]
  - Unresponsive to stimuli [Recovered/Resolved]
  - Agitation [Recovered/Resolved]
  - Suicide attempt [Recovered/Resolved]
  - Intentional overdose [Recovered/Resolved]
